FAERS Safety Report 9262682 (Version 2)
Quarter: 2013Q2

REPORT INFORMATION
  Report Type: Spontaneous
  Country: CN (occurrence: CN)
  Receive Date: 20130430
  Receipt Date: 20130516
  Transmission Date: 20140414
  Serious: Yes (Other)
  Sender: FDA-Public Use
  Company Number: CN-JNJFOC-20130412742

PATIENT
  Age: 65 Year
  Sex: Male

DRUGS (4)
  1. REMINYL [Suspect]
     Indication: SENILE DEMENTIA
     Route: 048
     Dates: end: 20130327
  2. REMINYL [Suspect]
     Indication: SENILE DEMENTIA
     Route: 048
     Dates: start: 201206
  3. BISOPROLOL FUMARATE [Concomitant]
     Indication: HYPERTENSION
     Route: 065
  4. LEVAMLODIPINE BESYLATE [Concomitant]
     Indication: HYPERTENSION
     Route: 065

REACTIONS (2)
  - Epilepsy [Recovered/Resolved]
  - Treatment noncompliance [Unknown]
